FAERS Safety Report 17888229 (Version 1)
Quarter: 2020Q2

REPORT INFORMATION
  Report Type: Spontaneous
  Country: US (occurrence: US)
  Receive Date: 20200611
  Receipt Date: 20200611
  Transmission Date: 20200714
  Serious: No
  Sender: FDA-Public Use
  Company Number: None

PATIENT
  Age: 56 Year
  Sex: Male
  Weight: 74 kg

DRUGS (7)
  1. DOCUSATE 100 MG CAPSULE [Concomitant]
     Active Substance: DOCUSATE SODIUM
     Dates: start: 20200606
  2. LIDOCAINE 4% TRANSDERMAL PATCH [Concomitant]
     Dates: start: 20200605
  3. SENNA TABLET [Concomitant]
     Dates: start: 20200606
  4. POLYETHYLENE GLYCOL 17G POWDER [Concomitant]
     Dates: start: 20200606
  5. REMDESIVIR. [Suspect]
     Active Substance: REMDESIVIR
     Indication: COVID-19
     Route: 041
     Dates: start: 20200607, end: 20200607
  6. ENOXAPARIN 30 MG SUBCUTANOUS INJECTION [Concomitant]
     Dates: start: 20200606
  7. ACETAMINOPHEN 650 MG TABLET [Concomitant]
     Dates: start: 20200605

REACTIONS (4)
  - Anxiety [None]
  - Blood pressure systolic increased [None]
  - Nausea [None]
  - Chest discomfort [None]

NARRATIVE: CASE EVENT DATE: 20200607
